FAERS Safety Report 6269973-9 (Version None)
Quarter: 2009Q3

REPORT INFORMATION
  Report Type: 
  Country: None (occurrence: None)
  Receive Date: 20090716
  Receipt Date: 20080201
  Transmission Date: 20100115
  Serious: Yes (Other)
  Sender: FDA-Public Use
  Company Number: US-ASTRAZENECA-2007UW07509

PATIENT
  Age: 15682 Day
  Sex: Female
  Weight: 122.5 kg

DRUGS (24)
  1. SEROQUEL [Suspect]
     Indication: SLEEP DISORDER
     Dosage: 25 MG TO 300 MG
     Route: 048
     Dates: start: 19980615
  2. SEROQUEL [Suspect]
     Dosage: 100MG-600MG, AT NIGHT
     Route: 048
     Dates: start: 19980615
  3. ZYPREXA [Concomitant]
     Dates: start: 20010626, end: 20030618
  4. EFFEXOR [Concomitant]
     Dates: start: 19980601, end: 20070101
  5. ALPRAZOLAM [Concomitant]
     Dates: start: 20011201
  6. HYDROXYZINE [Concomitant]
     Dates: start: 20000301, end: 20021201
  7. DIAZEPAM [Concomitant]
     Dates: start: 20010801
  8. DIAZEPAM [Concomitant]
     Dates: start: 20011001, end: 20011101
  9. HRT [Concomitant]
  10. PROMETHAZINE [Concomitant]
     Dates: start: 19970416
  11. LAMICTAL [Concomitant]
     Dates: start: 19970130
  12. IMITREX [Concomitant]
     Dates: start: 19951005
  13. IMITREX [Concomitant]
     Dates: start: 19960830
  14. DEPAKOTE [Concomitant]
     Dates: start: 19960822
  15. TEGRETOL-XR [Concomitant]
     Dosage: 100MG-200MG
     Dates: start: 19960923
  16. LEVOXYL [Concomitant]
     Dates: start: 19951110
  17. WARFARIN SODIUM [Concomitant]
     Dosage: 5MG-7.5MG
     Dates: start: 20000817
  18. TEMAZEPAM [Concomitant]
     Dates: start: 19950727
  19. TEMAZEPAM [Concomitant]
     Dates: start: 20021212
  20. REMERON [Concomitant]
     Indication: SLEEP APNOEA SYNDROME
     Dosage: 15MG-30MG, EVERY NIGHT AS REQUIRED
     Route: 048
     Dates: start: 20000714
  21. AMBIEN [Concomitant]
     Dates: start: 19951107
  22. PAXIL [Concomitant]
     Dates: start: 19951107
  23. METFORMIN HCL [Concomitant]
     Route: 048
     Dates: start: 20060426
  24. TRILEPTAL [Concomitant]
     Route: 048
     Dates: start: 20020716

REACTIONS (17)
  - CHEST PAIN [None]
  - CONVULSION [None]
  - GAIT DISTURBANCE [None]
  - GLYCOSYLATED HAEMOGLOBIN INCREASED [None]
  - HYPERTENSION [None]
  - KNEE OPERATION [None]
  - LIGAMENT SPRAIN [None]
  - MENISCUS LESION [None]
  - MUSCULOSKELETAL STIFFNESS [None]
  - NEUROPATHY PERIPHERAL [None]
  - PARAESTHESIA [None]
  - RASH [None]
  - RHINITIS [None]
  - SKIN DISORDER [None]
  - TENDONITIS [None]
  - THROMBOSIS [None]
  - TYPE 2 DIABETES MELLITUS [None]
